FAERS Safety Report 8144799-X (Version None)
Quarter: 2012Q1

REPORT INFORMATION
  Report Type: 
  Country: None (occurrence: None)
  Receive Date: 20120217
  Receipt Date: 20120215
  Transmission Date: 20120608
  Serious: Yes (Disabling, Other)
  Sender: FDA-Public Use
  Company Number: US-PFIZER INC-2012041273

PATIENT
  Sex: Female
  Weight: 88.435 kg

DRUGS (3)
  1. XANAX [Suspect]
     Indication: NERVOUS SYSTEM DISORDER
     Dosage: 1 MG, 3X/DAY
     Route: 048
  2. XANAX [Suspect]
     Dosage: UNK
     Route: 048
  3. ACETAMINOPHEN AND HYDROCODONE BITARTRATE [Concomitant]
     Dosage: 10 MG, UNK

REACTIONS (2)
  - CHRONIC OBSTRUCTIVE PULMONARY DISEASE [None]
  - MYOCARDIAL INFARCTION [None]
